FAERS Safety Report 9816085 (Version 1)
Quarter: 2014Q1

REPORT INFORMATION
  Report Type: Spontaneous
  Country: BE (occurrence: BE)
  Receive Date: 20140114
  Receipt Date: 20140114
  Transmission Date: 20141002
  Serious: Yes (Other)
  Sender: FDA-Public Use
  Company Number: BE-PERRIGO-14BE000214

PATIENT
  Age: 86 Year
  Sex: Female

DRUGS (1)
  1. FLAVOXATE HYDROCHLORIDE RX 100 MG 7H7 [Suspect]
     Indication: PRODUCT USED FOR UNKNOWN INDICATION
     Dosage: UNKNOWN, UNKNOWN
     Route: 065

REACTIONS (1)
  - Cognitive disorder [Unknown]
